FAERS Safety Report 7659085-1 (Version None)
Quarter: 2011Q3

REPORT INFORMATION
  Report Type: 
  Country: None (occurrence: None)
  Receive Date: 20110805
  Receipt Date: 20110727
  Transmission Date: 20111222
  Serious: Yes (Other)
  Sender: FDA-Public Use
  Company Number: US-ELI_LILLY_AND_COMPANY-US201106004627

PATIENT
  Sex: Male
  Weight: 87.982 kg

DRUGS (1)
  1. EFFIENT [Suspect]
     Indication: STENT PLACEMENT
     Dosage: 10 MG, UNKNOWN

REACTIONS (3)
  - GASTROINTESTINAL HAEMORRHAGE [None]
  - COLON CANCER [None]
  - HAEMOGLOBIN ABNORMAL [None]
